FAERS Safety Report 24217373 (Version 1)
Quarter: 2024Q3

REPORT INFORMATION
  Report Type: Spontaneous
  Country: JP (occurrence: JP)
  Receive Date: 20240816
  Receipt Date: 20240816
  Transmission Date: 20241016
  Serious: Yes (Hospitalization, Other)
  Sender: BRISTOL MYERS SQUIBB
  Company Number: JP-MLMSERVICE-20210107-2666439-1

PATIENT
  Age: 65 Year
  Sex: Male

DRUGS (3)
  1. ABRAXANE [Suspect]
     Active Substance: PACLITAXEL
     Indication: Lung squamous cell carcinoma stage IV
     Dosage: FREQUENCY TEXT: ON DAYS 1,8,15 CYCLICAL?100MG/M2
     Route: 042
  2. CARBOPLATIN [Suspect]
     Active Substance: CARBOPLATIN
     Indication: Lung squamous cell carcinoma stage IV
     Dosage: FREQUENCY TEXT: DAY1, CYCLICAL?AUC6
  3. PEMBROLIZUMAB [Suspect]
     Active Substance: PEMBROLIZUMAB
     Indication: Lung squamous cell carcinoma stage IV
     Dosage: FREQUENCY TEXT: CYCLICAL?200 MG

REACTIONS (2)
  - Immune-mediated hepatitis [Recovered/Resolved]
  - Immune-mediated pancreatitis [Recovered/Resolved]
